FAERS Safety Report 4600137-8 (Version None)
Quarter: 2005Q1

REPORT INFORMATION
  Report Type: 
  Country: None (occurrence: None)
  Receive Date: 20050307
  Receipt Date: 20050223
  Transmission Date: 20050727
  Serious: Yes (Hospitalization, Other)
  Sender: FDA-Public Use
  Company Number: FR-BRISTOL-MYERS SQUIBB COMPANY-12877270

PATIENT
  Age: 46 Year
  Sex: Male
  Weight: 59 kg

DRUGS (4)
  1. REYATAZ [Suspect]
     Dates: start: 20040706, end: 20040908
  2. NORVIR [Suspect]
     Dates: start: 20040706, end: 20040908
  3. TRIZIVIR [Concomitant]
     Dates: start: 20040629
  4. VALTREX [Concomitant]

REACTIONS (5)
  - COUGH [None]
  - DIARRHOEA [None]
  - HEPATITIS [None]
  - HEPATOMEGALY [None]
  - JAUNDICE [None]
